FAERS Safety Report 4411004-7 (Version None)
Quarter: 2004Q3

REPORT INFORMATION
  Report Type: 
  Country: None (occurrence: None)
  Receive Date: 20040729
  Receipt Date: 20040719
  Transmission Date: 20050211
  Serious: Yes (Hospitalization, Other)
  Sender: FDA-Public Use
  Company Number: US-BRISTOL-MYERS SQUIBB COMPANY-12644373

PATIENT
  Age: 61 Year
  Sex: Female

DRUGS (3)
  1. COUMADIN [Suspect]
     Indication: PULMONARY HYPERTENSION
     Dates: start: 20021031, end: 20040301
  2. TRACLEER [Suspect]
     Indication: PULMONARY HYPERTENSION
     Dosage: INTERRUPTED FOR 3 WEEKS FROM APR TO MAY-2004
     Route: 048
     Dates: start: 20030101
  3. ASPIRIN [Concomitant]

REACTIONS (8)
  - ANAEMIA [None]
  - BLOOD CREATININE DECREASED [None]
  - GASTROINTESTINAL HAEMORRHAGE [None]
  - HYPOTENSION [None]
  - NAUSEA [None]
  - PELVIC PAIN [None]
  - SYNCOPE [None]
  - WHITE BLOOD CELL COUNT DECREASED [None]
